FAERS Safety Report 25161313 (Version 4)
Quarter: 2025Q3

REPORT INFORMATION
  Report Type: Spontaneous
  Country: EU (occurrence: EU)
  Receive Date: 20250404
  Receipt Date: 20250714
  Transmission Date: 20251021
  Serious: Yes (Congenital Anomaly)
  Sender: VERTEX
  Company Number: EU-VERTEX PHARMACEUTICALS-2025-005153

PATIENT
  Sex: Male
  Weight: 4 kg

DRUGS (2)
  1. ELEXACAFTOR\IVACAFTOR\TEZACAFTOR [Suspect]
     Active Substance: ELEXACAFTOR\IVACAFTOR\TEZACAFTOR
     Indication: Cystic fibrosis
     Route: 064
  2. ELEXACAFTOR\IVACAFTOR\TEZACAFTOR [Suspect]
     Active Substance: ELEXACAFTOR\IVACAFTOR\TEZACAFTOR
     Indication: Off label use

REACTIONS (3)
  - Congenital vas deferens absence [Not Recovered/Not Resolved]
  - Dyspnoea [Recovered/Resolved]
  - Pancreatic failure [Unknown]
